FAERS Safety Report 5194704-3 (Version None)
Quarter: 2006Q4

REPORT INFORMATION
  Report Type: 
  Country: None (occurrence: None)
  Receive Date: 20061229
  Receipt Date: 20061221
  Transmission Date: 20070319
  Serious: Yes (Other)
  Sender: FDA-Public Use
  Company Number: PHEH2006US15450

PATIENT
  Sex: Female

DRUGS (1)
  1. AREDIA [Suspect]

REACTIONS (1)
  - OSTEONECROSIS [None]
